FAERS Safety Report 4407413-2 (Version None)
Quarter: 2004Q3

REPORT INFORMATION
  Report Type: 
  Country: None (occurrence: None)
  Receive Date: 20040723
  Receipt Date: 20040723
  Transmission Date: 20050211
  Serious: Yes (Hospitalization)
  Sender: FDA-Public Use
  Company Number: None

PATIENT

DRUGS (2)
  1. MORPHINE [Suspect]
     Indication: PAIN
     Dosage: 1 Q 12 HR.
  2. MORPHINE [Suspect]
     Dosage: 1 Q 6-8 HR PRN

REACTIONS (2)
  - MEDICATION ERROR [None]
  - MENTAL STATUS CHANGES [None]
